FAERS Safety Report 11078942 (Version 1)
Quarter: 2015Q2

REPORT INFORMATION
  Report Type: Spontaneous
  Country: FR (occurrence: FR)
  Receive Date: 20150430
  Receipt Date: 20150430
  Transmission Date: 20150821
  Serious: Yes (Hospitalization)
  Sender: FDA-Public Use
  Company Number: FR-SA-2015SA055462

PATIENT
  Age: 79 Year
  Sex: Male

DRUGS (6)
  1. BARACLUDE [Suspect]
     Active Substance: ENTECAVIR
     Indication: HEPATITIS B VIRUS TEST POSITIVE
     Route: 048
     Dates: start: 201412
  2. OXALIPLATIN. [Suspect]
     Active Substance: OXALIPLATIN
     Indication: LYMPHOMA
     Dosage: FORM:INFUSION
     Route: 042
     Dates: start: 20150315, end: 20150315
  3. GEMCITABINE [Suspect]
     Active Substance: GEMCITABINE\GEMCITABINE HYDROCHLORIDE
     Indication: LYMPHOMA
     Dosage: FORM:INFUSION
     Route: 042
     Dates: start: 20150315, end: 20150315
  4. EPOETIN ZETA [Concomitant]
     Active Substance: ERYTHROPOIETIN
  5. PRIMPERAN [Suspect]
     Active Substance: METOCLOPRAMIDE HYDROCHLORIDE
     Route: 065
     Dates: start: 20150315
  6. ZOPHREN [Suspect]
     Active Substance: ONDANSETRON
     Route: 065
     Dates: start: 20150315

REACTIONS (4)
  - Blood alkaline phosphatase increased [Not Recovered/Not Resolved]
  - Bilirubin conjugated increased [Not Recovered/Not Resolved]
  - Cell death [Not Recovered/Not Resolved]
  - Blood bilirubin increased [Not Recovered/Not Resolved]

NARRATIVE: CASE EVENT DATE: 20150409
